FAERS Safety Report 10225622 (Version 1)
Quarter: 2014Q2

REPORT INFORMATION
  Report Type: Spontaneous
  Country: US (occurrence: US)
  Receive Date: 20140609
  Receipt Date: 20140609
  Transmission Date: 20141212
  Serious: Yes (Other)
  Sender: FDA-Public Use
  Company Number: US-ASTELLAS-2013US011665

PATIENT
  Sex: Male

DRUGS (3)
  1. PROGRAF [Suspect]
     Indication: RENAL TRANSPLANT
     Dosage: 3 CAPSULES IN MORNING, 4 CAPSULES IN EVENING
     Route: 048
     Dates: start: 20070327
  2. ASPIRIN [Concomitant]
     Indication: BLOOD PRESSURE
     Route: 065
  3. COUMADIN                           /00014802/ [Concomitant]
     Indication: BLOOD DISORDER
     Dosage: UNK U, UNK
     Route: 065

REACTIONS (1)
  - Thrombosis [Unknown]
